FAERS Safety Report 15014499 (Version 1)
Quarter: 2018Q2

REPORT INFORMATION
  Report Type: Spontaneous
  Country: US (occurrence: US)
  Receive Date: 20180615
  Receipt Date: 20180615
  Transmission Date: 20180711
  Serious: No
  Sender: FDA-Public Use
  Company Number: US-ASTRAZENECA-2018SE67346

PATIENT
  Age: 80 Year
  Sex: Male
  Weight: 77.1 kg

DRUGS (4)
  1. DILTIAZEM. [Concomitant]
     Active Substance: DILTIAZEM
     Indication: HEART RATE IRREGULAR
     Dosage: UNKNOWN
     Dates: start: 2017
  2. SYMBICORT [Suspect]
     Active Substance: BUDESONIDE\FORMOTEROL FUMARATE DIHYDRATE
     Indication: DYSPNOEA
     Dosage: 80-4.MCG TWO PUFFS TWICE A DAY ONE YEAR AGO
     Route: 055
     Dates: start: 2017
  3. ALBUTEROL. [Concomitant]
     Active Substance: ALBUTEROL
     Dosage: AS REQUIRED
  4. RANITIDINE. [Concomitant]
     Active Substance: RANITIDINE
     Indication: GASTROOESOPHAGEAL REFLUX DISEASE

REACTIONS (6)
  - Off label use [Unknown]
  - Asthma [Unknown]
  - Productive cough [Not Recovered/Not Resolved]
  - Intentional product misuse [Unknown]
  - Product use in unapproved indication [Not Recovered/Not Resolved]
  - Dysphonia [Not Recovered/Not Resolved]

NARRATIVE: CASE EVENT DATE: 2017
